FAERS Safety Report 6607812-4 (Version None)
Quarter: 2010Q1

REPORT INFORMATION
  Report Type: 
  Country: None (occurrence: None)
  Receive Date: 20100225
  Receipt Date: 20100225
  Transmission Date: 20100710
  Serious: Yes (Disabling)
  Sender: FDA-Public Use
  Company Number: None

PATIENT
  Sex: Female
  Weight: 65.7716 kg

DRUGS (1)
  1. CRESTOR [Suspect]
     Dosage: 1 TABLET DAILY MOUTH
     Route: 048
     Dates: start: 20040804, end: 20040826

REACTIONS (3)
  - FEELING ABNORMAL [None]
  - MUSCULAR WEAKNESS [None]
  - WALKING AID USER [None]
